FAERS Safety Report 6859570-6 (Version None)
Quarter: 2010Q3

REPORT INFORMATION
  Report Type: 
  Country: None (occurrence: None)
  Receive Date: 20100719
  Receipt Date: 20080924
  Transmission Date: 20110219
  Serious: No
  Sender: FDA-Public Use
  Company Number: US-PFIZER INC-2008018548

PATIENT
  Sex: Male
  Weight: 75 kg

DRUGS (6)
  1. CHANTIX [Suspect]
     Indication: SMOKING CESSATION THERAPY
     Dates: start: 20080101
  2. WELLBUTRIN [Concomitant]
     Indication: DEPRESSION
  3. DEPAKOTE [Concomitant]
     Indication: SLEEP DISORDER
     Dates: start: 20080208
  4. CLONAZEPAM [Concomitant]
  5. MAGNESIUM [Concomitant]
  6. FISH OIL [Concomitant]

REACTIONS (4)
  - ABNORMAL DREAMS [None]
  - DISCOMFORT [None]
  - DRUG INEFFECTIVE [None]
  - INCORRECT DOSE ADMINISTERED [None]
